FAERS Safety Report 26063835 (Version 1)
Quarter: 2025Q4

REPORT INFORMATION
  Report Type: Spontaneous
  Country: CA (occurrence: CA)
  Receive Date: 20251119
  Receipt Date: 20251119
  Transmission Date: 20260117
  Serious: Yes (Hospitalization)
  Sender: TEVA
  Company Number: CA-TEVA-VS-3392525

PATIENT
  Age: 71 Year
  Sex: Female

DRUGS (7)
  1. PEMETREXED [Suspect]
     Active Substance: PEMETREXED
     Indication: Chemotherapy
     Dosage: FREQUENCY: ONCE, DOSE FORM: POWDER FOR SOLUTION INTRAVENOUS, PEMETREXED FOR INJECTION, USP SINGLE...
     Route: 042
  2. YERVOY [Suspect]
     Active Substance: IPILIMUMAB
     Indication: Chemotherapy
     Dosage: FREQUENCY: ONCE, DOSE FORM: SOLUTION INTRAVENOUS, YERVOY FOR I.V. INFUSION ONLY. 50MG/10ML AND 20...
     Route: 042
  3. CARBOPLATIN [Suspect]
     Active Substance: CARBOPLATIN
     Indication: Chemotherapy
     Dosage: FREQUENCY: ONCE, DOSE FORM: SOLUTION INTRAVENOUS, CARBOPLATIN INJECTION BP
     Route: 042
  4. OPDIVO [Suspect]
     Active Substance: NIVOLUMAB
     Indication: Chemotherapy
     Dosage: FREQUENCY: ONCE, DOSE FORM:SOLUTION INTRAVENOUS, OPDIVO 100MG/10ML (SINGLE-USE VIAL)
     Route: 042
  5. SENOKOT [Concomitant]
     Active Substance: SENNOSIDES
     Indication: Product used for unknown indication
     Dosage: DOSE FORM: NOT SPECIFIED
  6. POLYETHYLENE GLYCOL [Concomitant]
     Active Substance: POLYETHYLENE GLYCOL
     Indication: Product used for unknown indication
     Dosage: DOSE FORM: NOT SPECIFIED
  7. FOLIC ACID [Concomitant]
     Active Substance: FOLIC ACID
     Indication: Product used for unknown indication
     Dosage: DOSE FORM: NOT SPECIFIED

REACTIONS (1)
  - Pyrexia [Recovered/Resolved]
